FAERS Safety Report 15281484 (Version 1)
Quarter: 2018Q3

REPORT INFORMATION
  Report Type: Report from Study
  Country: IT (occurrence: IT)
  Receive Date: 20180815
  Receipt Date: 20180815
  Transmission Date: 20181010
  Serious: Yes (Hospitalization, Other)
  Sender: FDA-Public Use
  Company Number: IT-TEVA-2018-IT-940396

PATIENT
  Age: 13 Year
  Sex: Male
  Weight: 50 kg

DRUGS (27)
  1. VINCRISTINE [Suspect]
     Active Substance: VINCRISTINE
     Dosage: 2 MG, QD (EV ROUTE)
     Route: 050
     Dates: start: 20161011, end: 20161011
  2. GLIVEC [Suspect]
     Active Substance: IMATINIB MESYLATE
     Dosage: 441 MILLIGRAM DAILY;
     Route: 048
     Dates: start: 20170102
  3. GLIVEC [Suspect]
     Active Substance: IMATINIB MESYLATE
     Indication: PHILADELPHIA CHROMOSOME POSITIVE
     Route: 048
     Dates: start: 20160721
  4. CYCLOPHOSPHAMIDE. [Concomitant]
     Active Substance: CYCLOPHOSPHAMIDE
     Indication: PRODUCT USED FOR UNKNOWN INDICATION
     Dosage: 308 MILLIGRAM DAILY;
     Route: 050
     Dates: start: 20161012, end: 20161014
  5. METHOTREXATE. [Concomitant]
     Active Substance: METHOTREXATE
     Indication: PRODUCT USED FOR UNKNOWN INDICATION
     Dosage: 12 MILLIGRAM DAILY;
     Route: 037
     Dates: start: 20161011, end: 20161011
  6. DESAMETASONE [Concomitant]
     Active Substance: DEXAMETHASONE
     Indication: PRODUCT USED FOR UNKNOWN INDICATION
     Dosage: 30 MILLIGRAM DAILY;
     Route: 050
     Dates: start: 20161011, end: 20161015
  7. CITARABINA [Concomitant]
     Active Substance: CYTARABINE
     Indication: PRODUCT USED FOR UNKNOWN INDICATION
     Route: 050
     Dates: start: 20161210, end: 20161214
  8. VINCRISTINE [Suspect]
     Active Substance: VINCRISTINE
     Dosage: 2 MILLIGRAM DAILY;
     Route: 050
     Dates: start: 20161016, end: 20161016
  9. METHOTREXATE. [Concomitant]
     Active Substance: METHOTREXATE
     Dosage: UNK
     Route: 065
     Dates: start: 20161108
  10. CITARABINA [Concomitant]
     Active Substance: CYTARABINE
     Dosage: 30 MILLIGRAM DAILY;
     Route: 037
     Dates: start: 20161011, end: 20161011
  11. METHYLPREDNISOLONE. [Concomitant]
     Active Substance: METHYLPREDNISOLONE
     Indication: PRODUCT USED FOR UNKNOWN INDICATION
     Dosage: 10 MILLIGRAM DAILY;
     Route: 037
     Dates: start: 20161214, end: 20161214
  12. VINCRISTINE [Suspect]
     Active Substance: VINCRISTINE
     Indication: ACUTE LYMPHOCYTIC LEUKAEMIA
     Dosage: 2 MG, CYCLIC
     Route: 040
     Dates: start: 20170102, end: 20170223
  13. GLIVEC [Suspect]
     Active Substance: IMATINIB MESYLATE
     Indication: ACUTE LYMPHOCYTIC LEUKAEMIA
     Dosage: 500 MG ALTERNATED WITH 400 MG DAILY
     Route: 048
  14. L?ASPARAGINASE [Suspect]
     Active Substance: ASPARAGINASE
     Indication: ACUTE LYMPHOCYTIC LEUKAEMIA
     Dosage: 29400 IU, UNK
     Route: 042
     Dates: end: 20170130
  15. ERWINIASE [Concomitant]
     Active Substance: ASPARAGINASE
     Indication: PRODUCT USED FOR UNKNOWN INDICATION
     Dosage: 30000 UL DAILY;
     Route: 050
     Dates: start: 20161215, end: 20161227
  16. CITARABINA [Concomitant]
     Active Substance: CYTARABINE
     Dosage: 6160 MILLIGRAM DAILY; 3080 MG, BID (EV ROUTE)
     Route: 050
     Dates: start: 20161015, end: 20161015
  17. GLIVEC [Suspect]
     Active Substance: IMATINIB MESYLATE
     Dosage: UNK
     Route: 048
     Dates: start: 20161219
  18. KCL?RETARD [Concomitant]
     Active Substance: POTASSIUM CHLORIDE
     Indication: PRODUCT USED FOR UNKNOWN INDICATION
     Dosage: 4 DOSAGE FORMS DAILY;
     Route: 065
  19. CEFTAZIDIME. [Concomitant]
     Active Substance: CEFTAZIDIME
     Indication: PRODUCT USED FOR UNKNOWN INDICATION
     Dosage: 5400 MILLIGRAM DAILY;
     Route: 050
  20. ETOPOSIDE. [Concomitant]
     Active Substance: ETOPOSIDE
     Indication: PRODUCT USED FOR UNKNOWN INDICATION
     Dosage: 308 MILLIGRAM DAILY;
     Route: 050
     Dates: start: 20161212, end: 20161214
  21. METHOTREXATE. [Concomitant]
     Active Substance: METHOTREXATE
     Dosage: 7700 MILLIGRAM DAILY; 7700 MG, QD (EV ROUTE)
     Route: 065
     Dates: start: 20161011, end: 20161011
  22. DECADRON [Concomitant]
     Active Substance: DEXAMETHASONE
     Indication: PRODUCT USED FOR UNKNOWN INDICATION
     Dosage: UNK
     Route: 065
  23. PEGASPARGASE [Concomitant]
     Active Substance: PEGASPARGASE
     Indication: PRODUCT USED FOR UNKNOWN INDICATION
     Dosage: 1540 UL DAILY;
     Route: 050
     Dates: start: 20161016, end: 20161016
  24. ADRIBLASTINE [Suspect]
     Active Substance: DOXORUBICIN
     Indication: ACUTE LYMPHOCYTIC LEUKAEMIA
     Dosage: 44.1 MG, (CYCLIC)
     Route: 042
     Dates: end: 20170220
  25. ENAPREN [Concomitant]
     Active Substance: ENALAPRIL MALEATE
     Indication: PRODUCT USED FOR UNKNOWN INDICATION
     Dosage: UNK
     Route: 065
     Dates: start: 20170205
  26. BACTRIM [Concomitant]
     Active Substance: SULFAMETHOXAZOLE\TRIMETHOPRIM
     Indication: PRODUCT USED FOR UNKNOWN INDICATION
     Route: 065
  27. ANTRA [Concomitant]
     Active Substance: OMEPRAZOLE
     Indication: PRODUCT USED FOR UNKNOWN INDICATION
     Dosage: 40 MG, UNK
     Route: 042

REACTIONS (13)
  - Pulmonary mass [Unknown]
  - Cytogenetic analysis abnormal [Not Recovered/Not Resolved]
  - Catarrh [Recovering/Resolving]
  - Lung infection [Recovered/Resolved]
  - Cough [Recovering/Resolving]
  - Arthralgia [Not Recovered/Not Resolved]
  - Platelet count decreased [Unknown]
  - Metabolic disorder [Unknown]
  - Neutropenia [Recovered/Resolved]
  - Neutropenia [Not Recovered/Not Resolved]
  - Pneumonia [Recovered/Resolved]
  - Neutropenia [Recovered/Resolved]
  - Pyrexia [Unknown]

NARRATIVE: CASE EVENT DATE: 20161018
